FAERS Safety Report 9109761 (Version 1)
Quarter: 2013Q1

REPORT INFORMATION
  Report Type: Spontaneous
  Country: US (occurrence: US)
  Receive Date: 20130222
  Receipt Date: 20130222
  Transmission Date: 20140127
  Serious: No
  Sender: FDA-Public Use
  Company Number: US-PFIZER INC-2013065263

PATIENT
  Age: 57 Year
  Sex: Female

DRUGS (6)
  1. INDERAL LA [Suspect]
     Dosage: UNK
  2. CLINDAMYCIN HCL [Suspect]
     Dosage: UNK
  3. SUDAFED [Suspect]
     Dosage: UNK
  4. SUDAFED SINUS AND PAIN 12 HOUR [Suspect]
     Dosage: UNK
  5. ULTRAM [Suspect]
     Dosage: UNK
  6. COLCHICINE [Suspect]
     Dosage: UNK

REACTIONS (1)
  - Drug hypersensitivity [Unknown]
